FAERS Safety Report 6283019-8 (Version None)
Quarter: 2009Q3

REPORT INFORMATION
  Report Type: 
  Country: None (occurrence: None)
  Receive Date: 20090724
  Receipt Date: 20090722
  Transmission Date: 20100115
  Serious: Yes (Death)
  Sender: FDA-Public Use
  Company Number: DE-BRISTOL-MYERS SQUIBB COMPANY-14701973

PATIENT
  Age: 33 Year
  Sex: Female

DRUGS (3)
  1. ABILIFY [Suspect]
     Indication: SCHIZOPHRENIA, PARANOID TYPE
     Route: 048
     Dates: start: 20060101, end: 20090617
  2. ZOLPIDEM [Suspect]
     Dosage: 1 DF = 5-10MG;FORM:TABLET
     Route: 048
     Dates: start: 20070101
  3. DIAZEPAM [Suspect]
     Dosage: 1 DF = 2-5MG;PRN;FORM:TABLET
     Route: 048

REACTIONS (1)
  - CARDIAC ARREST [None]
